FAERS Safety Report 8203778-4 (Version None)
Quarter: 2012Q1

REPORT INFORMATION
  Report Type: 
  Country: None (occurrence: None)
  Receive Date: 20120308
  Receipt Date: 20120305
  Transmission Date: 20120608
  Serious: Yes (Hospitalization)
  Sender: FDA-Public Use
  Company Number: A0968043A

PATIENT
  Age: 40 Year
  Sex: Female

DRUGS (1)
  1. SODIUM FLUORIDE + POTASSIUM NITRATE (FORMULATION UNKNOWN) (SODIUM FLUO [Suspect]
     Indication: SENSITIVITY OF TEETH

REACTIONS (7)
  - INCREASED UPPER AIRWAY SECRETION [None]
  - MALAISE [None]
  - VOMITING [None]
  - INSOMNIA [None]
  - DEHYDRATION [None]
  - DYSGEUSIA [None]
  - RASH [None]
